FAERS Safety Report 4678237-6 (Version None)
Quarter: 2005Q2

REPORT INFORMATION
  Report Type: 
  Country: None (occurrence: None)
  Receive Date: 20050527
  Receipt Date: 20050513
  Transmission Date: 20051028
  Serious: Yes (Hospitalization)
  Sender: FDA-Public Use
  Company Number: D-A2501011-3019

PATIENT
  Age: 82 Year
  Sex: Male
  Weight: 72.6 kg

DRUGS (3)
  1. DONEPEZIL HCL [Suspect]
     Indication: DEMENTIA ALZHEIMER'S TYPE
     Dosage: 5 + 10 MG, 1 IN 1 D, ORAL
     Route: 048
     Dates: start: 20030508, end: 20030604
  2. DONEPEZIL HCL [Suspect]
     Indication: DEMENTIA ALZHEIMER'S TYPE
     Dosage: 5 + 10 MG, 1 IN 1 D, ORAL
     Route: 048
     Dates: start: 20030605
  3. ASPIRIN [Concomitant]

REACTIONS (3)
  - INFECTION [None]
  - ORCHIDECTOMY [None]
  - PYREXIA [None]
